FAERS Safety Report 5709138-X (Version None)
Quarter: 2008Q2

REPORT INFORMATION
  Report Type: 
  Country: None (occurrence: None)
  Receive Date: 20080418
  Receipt Date: 20080415
  Transmission Date: 20081010
  Serious: Yes (Other)
  Sender: FDA-Public Use
  Company Number: US-ALLERGAN-0804493US

PATIENT
  Sex: Female

DRUGS (2)
  1. BOTOX [Suspect]
     Indication: BLADDER DISORDER
     Dosage: UNK, SINGLE
     Route: 065
  2. IV SEDATION [Concomitant]
     Indication: SEDATION
     Dosage: UNK, SINGLE
     Route: 042

REACTIONS (1)
  - BRADYCARDIA [None]
